FAERS Safety Report 19216262 (Version 1)
Quarter: 2021Q2

REPORT INFORMATION
  Report Type: Spontaneous
  Country: US (occurrence: US)
  Receive Date: 20210505
  Receipt Date: 20210505
  Transmission Date: 20210717
  Serious: Yes (Hospitalization)
  Sender: FDA-Public Use
  Company Number: None

PATIENT
  Age: 54 Year
  Sex: Female
  Weight: 95.3 kg

DRUGS (1)
  1. TOPOTECAN [Suspect]
     Active Substance: TOPOTECAN HYDROCHLORIDE
     Dates: end: 20210331

REACTIONS (7)
  - Metastases to central nervous system [None]
  - Amnesia [None]
  - Diplopia [None]
  - Hydrocephalus [None]
  - Delirium [None]
  - Cerebral mass effect [None]
  - Pneumonia [None]

NARRATIVE: CASE EVENT DATE: 20210329
